FAERS Safety Report 24033929 (Version 1)
Quarter: 2024Q3

REPORT INFORMATION
  Report Type: Spontaneous
  Country: US (occurrence: US)
  Receive Date: 20240701
  Receipt Date: 20240701
  Transmission Date: 20241017
  Serious: Yes (Hospitalization, Other)
  Sender: HIKMA
  Company Number: US-MLMSERVICE-20240405-PI015841-00329-1

PATIENT
  Age: 41 Year
  Sex: Male

DRUGS (2)
  1. VANCOMYCIN [Suspect]
     Active Substance: VANCOMYCIN
     Indication: Cellulitis
     Dosage: 1.5 GRAM, Q12H, A TOTAL OF THREE DOSES
     Route: 042
  2. VANCOMYCIN [Suspect]
     Active Substance: VANCOMYCIN
     Dosage: 2 GRAM, LOADING DOSE
     Route: 042

REACTIONS (1)
  - Kounis syndrome [Recovering/Resolving]
